FAERS Safety Report 6863897-1 (Version None)
Quarter: 2010Q3

REPORT INFORMATION
  Report Type: 
  Country: None (occurrence: None)
  Receive Date: 20100721
  Receipt Date: 20080312
  Transmission Date: 20110219
  Serious: No
  Sender: FDA-Public Use
  Company Number: US-PFIZER INC-2008023313

PATIENT
  Sex: Male
  Weight: 95.5 kg

DRUGS (16)
  1. CHANTIX [Suspect]
     Indication: SMOKING CESSATION THERAPY
     Route: 048
     Dates: start: 20080201
  2. ACETYLSALICYLIC ACID [Concomitant]
  3. DIGOXIN [Concomitant]
  4. CILOSTAZOL [Concomitant]
  5. BUMETANIDE [Concomitant]
  6. VYTORIN [Concomitant]
  7. COREG [Concomitant]
  8. VASOTEC [Concomitant]
  9. POTASSIUM CHLORIDE [Concomitant]
  10. METOLAZONE [Concomitant]
  11. LANTUS [Concomitant]
  12. NOVOLOG [Concomitant]
  13. FENTANYL [Concomitant]
  14. OXYCODONE [Concomitant]
  15. LYRICA [Concomitant]
  16. FEXOFENADINE [Concomitant]

REACTIONS (4)
  - DISTURBANCE IN ATTENTION [None]
  - MUSCLE SPASMS [None]
  - NAUSEA [None]
  - SLEEP DISORDER [None]
